FAERS Safety Report 25765361 (Version 2)
Quarter: 2025Q4

REPORT INFORMATION
  Report Type: Spontaneous
  Country: US (occurrence: US)
  Receive Date: 20250905
  Receipt Date: 20251005
  Transmission Date: 20260117
  Serious: No
  Sender: Kenvue
  Company Number: US-KENVUE-20250807171

PATIENT
  Sex: Female

DRUGS (14)
  1. TYLENOL [Suspect]
     Active Substance: ACETAMINOPHEN
     Indication: Myalgia
     Dosage: UNK
     Route: 065
     Dates: start: 2025
  2. TYLENOL [Suspect]
     Active Substance: ACETAMINOPHEN
     Indication: Pain
  3. UPTRAVI [Concomitant]
     Active Substance: SELEXIPAG
     Indication: Pulmonary arterial hypertension
     Dosage: 1000 MICROGRAM, TWICE A DAY
     Route: 048
     Dates: start: 202506
  4. UPTRAVI [Concomitant]
     Active Substance: SELEXIPAG
     Dosage: 200 MICROGRAM, TWICE A DAY
     Route: 048
     Dates: start: 202506
  5. UPTRAVI [Concomitant]
     Active Substance: SELEXIPAG
     Dosage: 600 MICROGRAM, TWICE A DAY
     Route: 048
     Dates: start: 202506
  6. UPTRAVI [Concomitant]
     Active Substance: SELEXIPAG
     Dosage: 800 MICROGRAM, TWICE A DAY
     Route: 048
     Dates: start: 202506
  7. UPTRAVI [Concomitant]
     Active Substance: SELEXIPAG
     Dosage: 1400 MICROGRAM, TWICE A DAY
     Route: 048
     Dates: start: 202506
  8. UPTRAVI [Concomitant]
     Active Substance: SELEXIPAG
     Dosage: 200 MICROGRAM, TWICE A DAY
     Route: 048
     Dates: start: 202506
  9. UPTRAVI [Concomitant]
     Active Substance: SELEXIPAG
     Dosage: 200 MICROGRAM, TWICE A DAY
     Route: 048
     Dates: start: 202506
  10. IBUPROFEN [Concomitant]
     Active Substance: IBUPROFEN
     Indication: Myalgia
     Dosage: UNK
     Route: 065
     Dates: start: 2025
  11. IBUPROFEN [Concomitant]
     Active Substance: IBUPROFEN
     Indication: Pain
  12. IBUPROFEN [Concomitant]
     Active Substance: IBUPROFEN
     Indication: Abdominal discomfort
  13. ADEMPAS [Concomitant]
     Active Substance: RIOCIGUAT
     Indication: Product used for unknown indication
     Route: 065
  14. ONDANSETRON [Concomitant]
     Active Substance: ONDANSETRON
     Indication: Abdominal discomfort
     Route: 065

REACTIONS (1)
  - Product use in unapproved indication [Unknown]

NARRATIVE: CASE EVENT DATE: 20250101
